FAERS Safety Report 6287893-0 (Version None)
Quarter: 2009Q3

REPORT INFORMATION
  Report Type: 
  Country: None (occurrence: None)
  Receive Date: 20090729
  Receipt Date: 20090727
  Transmission Date: 20100115
  Serious: Yes (Hospitalization)
  Sender: FDA-Public Use
  Company Number: US-ASTRAZENECA-2009UW21253

PATIENT
  Age: 60 Year
  Sex: Female
  Weight: 94.3 kg

DRUGS (5)
  1. NEXIUM [Suspect]
     Route: 048
  2. CELEBREX [Concomitant]
     Indication: NERVOUSNESS
  3. ESTRADIOL [Concomitant]
  4. HYOMAX SR [Concomitant]
     Indication: MUSCLE SPASMS
  5. WARFARIN SODIUM [Concomitant]
     Indication: BLOOD PRESSURE

REACTIONS (4)
  - CARDIAC DISORDER [None]
  - CHEST PAIN [None]
  - OESOPHAGEAL DISCOMFORT [None]
  - OROPHARYNGEAL BLISTERING [None]
